FAERS Safety Report 13026732 (Version 3)
Quarter: 2017Q1

REPORT INFORMATION
  Report Type: Report from Study
  Country: US (occurrence: US)
  Receive Date: 20161214
  Receipt Date: 20170106
  Transmission Date: 20170428
  Serious: Yes (Hospitalization)
  Sender: FDA-Public Use
  Company Number: US-VERTEX PHARMACEUTICALS-2016-006524

PATIENT
  Age: 23 Year
  Sex: Male

DRUGS (2)
  1. ORKAMBI [Suspect]
     Active Substance: IVACAFTOR\LUMACAFTOR
     Dosage: 2 DF (200MG-125MG), BID
     Route: 048
     Dates: start: 20161120
  2. ORKAMBI [Suspect]
     Active Substance: IVACAFTOR\LUMACAFTOR
     Indication: CYSTIC FIBROSIS
     Dosage: 1 DF, BID
     Route: 048
     Dates: start: 20150909, end: 2016

REACTIONS (5)
  - Muscle strain [Recovered/Resolved]
  - Incorrect dose administered [Recovered/Resolved]
  - Pneumonia bacterial [Recovered/Resolved]
  - Chest discomfort [Recovered/Resolved]
  - Dyspnoea [Unknown]

NARRATIVE: CASE EVENT DATE: 20150909
